FAERS Safety Report 10173730 (Version 1)
Quarter: 2014Q2

REPORT INFORMATION
  Report Type: Spontaneous
  Country: US (occurrence: US)
  Receive Date: 20140515
  Receipt Date: 20140515
  Transmission Date: 20141212
  Serious: No
  Sender: FDA-Public Use
  Company Number: US-TEVA-464241USA

PATIENT
  Sex: Female

DRUGS (1)
  1. PROGESTERONE [Suspect]

REACTIONS (3)
  - Breast tenderness [Unknown]
  - Mood swings [Unknown]
  - Increased appetite [Unknown]
